FAERS Safety Report 12464471 (Version 2)
Quarter: 2016Q2

REPORT INFORMATION
  Report Type: Report from Study
  Country: GB (occurrence: GB)
  Receive Date: 20160614
  Receipt Date: 20160624
  Transmission Date: 20160815
  Serious: Yes (Hospitalization)
  Sender: FDA-Public Use
  Company Number: GB-CELGENEUS-GBR-2015080848

PATIENT
  Age: 74 Year
  Sex: Female
  Weight: 98.8 kg

DRUGS (12)
  1. PARACETAMOL [Concomitant]
     Active Substance: ACETAMINOPHEN
     Indication: PAIN
     Route: 048
     Dates: start: 201504, end: 20150706
  2. ORAMORPH [Concomitant]
     Active Substance: MORPHINE SULFATE
     Indication: PAIN
     Route: 065
     Dates: start: 20150706, end: 20150828
  3. DEXAMETHASONE. [Suspect]
     Active Substance: DEXAMETHASONE
     Dosage: 120 MILLIGRAM
     Route: 065
     Dates: start: 20080811, end: 200811
  4. ENOXAPARIN [Concomitant]
     Active Substance: ENOXAPARIN
     Indication: THROMBOSIS PROPHYLAXIS
     Route: 048
     Dates: start: 20150630
  5. POMALIDOMIDE [Suspect]
     Active Substance: POMALIDOMIDE
     Indication: PLASMA CELL MYELOMA
     Dosage: 4 MILLIGRAM
     Route: 048
     Dates: start: 20150701
  6. DEXAMETHASONE. [Suspect]
     Active Substance: DEXAMETHASONE
     Indication: PLASMA CELL MYELOMA
     Route: 065
     Dates: start: 20150630
  7. DEXAMETHASONE. [Suspect]
     Active Substance: DEXAMETHASONE
     Dosage: 20 MILLIGRAM
     Route: 065
     Dates: start: 20110308, end: 20110520
  8. AMLODIPINE [Concomitant]
     Active Substance: AMLODIPINE BESYLATE
     Indication: HYPERTENSION
     Route: 048
     Dates: start: 2010, end: 20150622
  9. OMEPRAZOLE. [Concomitant]
     Active Substance: OMEPRAZOLE
     Indication: PRODUCT USED FOR UNKNOWN INDICATION
     Route: 065
     Dates: start: 20150630
  10. SODIUM CLODRONATE [Concomitant]
     Active Substance: CLODRONIC ACID
     Indication: PLASMA CELL MYELOMA
     Route: 065
     Dates: start: 200808, end: 20150728
  11. ASPIRIN. [Concomitant]
     Active Substance: ASPIRIN
     Indication: THROMBOSIS PROPHYLAXIS
     Route: 048
     Dates: start: 20150120, end: 201506
  12. CODEINE [Concomitant]
     Active Substance: CODEINE
     Indication: PAIN
     Route: 048
     Dates: start: 201504, end: 20150706

REACTIONS (3)
  - Arthralgia [Recovered/Resolved]
  - Blood alkaline phosphatase increased [Recovered/Resolved]
  - Oedema peripheral [Recovering/Resolving]

NARRATIVE: CASE EVENT DATE: 20150717
